FAERS Safety Report 13449572 (Version 1)
Quarter: 2017Q2

REPORT INFORMATION
  Report Type: Spontaneous
  Country: BR (occurrence: BR)
  Receive Date: 20170417
  Receipt Date: 20170417
  Transmission Date: 20170830
  Serious: Yes (Other)
  Sender: FDA-Public Use
  Company Number: PHHY2017BR053221

PATIENT
  Age: 5 Year
  Sex: Female

DRUGS (1)
  1. AMOXICILLIN SODIUM+POTASSIUM CLAVULANATE SANDOZ [Suspect]
     Active Substance: AMOXICILLIN\CLAVULANATE POTASSIUM
     Indication: EAR INFECTION
     Dosage: 9 ML, Q8H
     Route: 048
     Dates: start: 20170330

REACTIONS (3)
  - Hypersensitivity [Unknown]
  - Eye swelling [Unknown]
  - Ear swelling [Unknown]

NARRATIVE: CASE EVENT DATE: 20170330
